FAERS Safety Report 7402242-X (Version None)
Quarter: 2011Q2

REPORT INFORMATION
  Report Type: 
  Country: None (occurrence: None)
  Receive Date: 20110408
  Receipt Date: 20110404
  Transmission Date: 20111010
  Serious: Yes (Other)
  Sender: FDA-Public Use
  Company Number: US-PFIZER INC-2011075006

PATIENT
  Age: 80 Year
  Sex: Female

DRUGS (1)
  1. AROMASIN [Suspect]
     Dosage: UNK

REACTIONS (6)
  - VISUAL IMPAIRMENT [None]
  - TENDONITIS [None]
  - FATIGUE [None]
  - JOINT DISLOCATION [None]
  - PAIN IN EXTREMITY [None]
  - HOT FLUSH [None]
